FAERS Safety Report 8483014-4 (Version None)
Quarter: 2012Q3

REPORT INFORMATION
  Report Type: 
  Country: None (occurrence: None)
  Receive Date: 20120702
  Receipt Date: 20120626
  Transmission Date: 20120928
  Serious: Yes (Death)
  Sender: FDA-Public Use
  Company Number: FR-PFIZER INC-2012152880

PATIENT
  Age: 76 Year
  Sex: Female

DRUGS (9)
  1. AMIODARONE HCL [Suspect]
     Dosage: 200 MG, 1X/DAY
     Route: 048
     Dates: end: 20120417
  2. CRESTOR [Suspect]
     Dosage: 5 MG, 1X/DAY
     Route: 048
     Dates: end: 20120417
  3. LAMOTRGINE [Suspect]
     Dosage: 100 MG, THREE DOSAGE FORMS PER DAY (1-1/2-1)
     Route: 048
     Dates: end: 20120417
  4. CLONAZEPAM [Concomitant]
     Dosage: UNK
  5. PAROXETINE [Suspect]
     Dosage: 20 MG, 1X/DAY
     Route: 048
     Dates: end: 20120417
  6. XANAX [Suspect]
     Dosage: 1 MG, 1X/DAY
     Route: 048
     Dates: end: 20120417
  7. IRBESARTAN [Suspect]
     Dosage: 300 MG, 1X/DAY
     Route: 048
     Dates: end: 20120417
  8. PENTOXIFYLLINE [Suspect]
     Indication: ATRIAL FIBRILLATION
     Dosage: 15MG ALTERNATING WITH 10MG, DAILY
     Route: 048
     Dates: end: 20120417
  9. ACETAMINOPHEN [Concomitant]
     Dosage: UNK
     Route: 048

REACTIONS (2)
  - COMA [None]
  - CEREBRAL HAEMORRHAGE [None]
